FAERS Safety Report 9877298 (Version 2)
Quarter: 2014Q1

REPORT INFORMATION
  Report Type: Spontaneous
  Country: SI (occurrence: SI)
  Receive Date: 20140206
  Receipt Date: 20140311
  Transmission Date: 20141002
  Serious: Yes (Death, Hospitalization, Other)
  Sender: FDA-Public Use
  Company Number: SI-JNJFOC-20140202569

PATIENT
  Age: 79 Year
  Sex: Female

DRUGS (3)
  1. XARELTO [Suspect]
     Indication: ATRIAL FIBRILLATION
     Route: 048
  2. XARELTO [Suspect]
     Indication: CEREBROVASCULAR ACCIDENT PROPHYLAXIS
     Route: 048
  3. RYTMONORMA [Concomitant]
     Route: 065

REACTIONS (8)
  - Cerebral haemorrhage [Fatal]
  - Subdural haemorrhage [Fatal]
  - Cerebral haematoma [Fatal]
  - Subdural haematoma [Fatal]
  - Coma [Unknown]
  - Angioedema [Unknown]
  - Oedema [Unknown]
  - Oropharyngeal pain [Unknown]
